FAERS Safety Report 25461735 (Version 1)
Quarter: 2025Q2

REPORT INFORMATION
  Report Type: Spontaneous
  Country: US (occurrence: None)
  Receive Date: 20250619
  Receipt Date: 20250619
  Transmission Date: 20250717
  Serious: Yes (Hospitalization)
  Sender: FDA-CTU
  Company Number: None

PATIENT
  Age: 69 Year
  Sex: Female
  Weight: 64.35 kg

DRUGS (8)
  1. VARENICLINE [Suspect]
     Active Substance: VARENICLINE
     Indication: Smoking cessation therapy
     Dosage: 1 TABLET(S) DAILY ORAL
     Route: 048
     Dates: start: 20250507, end: 20250616
  2. LOSARTAN [Concomitant]
     Active Substance: LOSARTAN
  3. Simvistatin 20 mg daily [Concomitant]
  4. VITAMINS [Concomitant]
     Active Substance: VITAMINS
  5. CALCIUM [Concomitant]
     Active Substance: CALCIUM
  6. VITAMIN D NOS [Concomitant]
     Active Substance: CHOLECALCIFEROL\ERGOCALCIFEROL
  7. Preservision 1 tab twice daily [Concomitant]
  8. Beetroot once daily [Concomitant]

REACTIONS (6)
  - Confusional state [None]
  - Cerebrovascular accident [None]
  - Memory impairment [None]
  - Poor quality sleep [None]
  - Hyperhidrosis [None]
  - Flushing [None]

NARRATIVE: CASE EVENT DATE: 20250616
